FAERS Safety Report 5444249-8 (Version None)
Quarter: 2007Q3

REPORT INFORMATION
  Report Type: 
  Country: None (occurrence: None)
  Receive Date: 20070906
  Receipt Date: 20070830
  Transmission Date: 20080115
  Serious: Yes (Other)
  Sender: FDA-Public Use
  Company Number: US-BAYER-200712804BCC

PATIENT
  Age: 52 Year
  Sex: Male
  Weight: 91 kg

DRUGS (2)
  1. PHILLIPS LIQUI-GELS [Suspect]
     Indication: CONSTIPATION
     Dosage: TOTAL DAILY DOSE: 400 MG  UNIT DOSE: 100 MG
     Route: 048
     Dates: start: 19970101
  2. PHILLIPS LIQUI-GELS [Suspect]
     Route: 048
     Dates: start: 20070801

REACTIONS (1)
  - PROSTATE CANCER [None]
